FAERS Safety Report 16235488 (Version 1)
Quarter: 2019Q2

REPORT INFORMATION
  Report Type: Spontaneous
  Country: SE (occurrence: SE)
  Receive Date: 20190424
  Receipt Date: 20190424
  Transmission Date: 20190711
  Serious: Yes (Hospitalization)
  Sender: FDA-Public Use
  Company Number: SE-ALLERGAN-1917372US

PATIENT
  Sex: Male

DRUGS (4)
  1. ALFUZOSIN [Concomitant]
     Active Substance: ALFUZOSIN
     Route: 065
  2. ESCITALOPRAM OXALATE - BP [Suspect]
     Active Substance: ESCITALOPRAM OXALATE
     Indication: DEPRESSION
     Dosage: 15 MG, QD
     Route: 048
     Dates: start: 20181113, end: 20190201
  3. ESCITALOPRAM OXALATE - BP [Suspect]
     Active Substance: ESCITALOPRAM OXALATE
     Dosage: TITRATED 10 MG TILL 12,5 MG UNDER TERAPITIDEN.
     Route: 048
     Dates: start: 20181015, end: 20181112
  4. MIRTAZAPIN [Concomitant]
     Active Substance: MIRTAZAPINE
     Route: 065

REACTIONS (3)
  - Wrong technique in product usage process [Unknown]
  - Syncope [Recovered/Resolved]
  - Epilepsy [Recovered/Resolved]

NARRATIVE: CASE EVENT DATE: 20190122
